FAERS Safety Report 13389242 (Version 3)
Quarter: 2019Q1

REPORT INFORMATION
  Report Type: Spontaneous
  Country: MY (occurrence: MY)
  Receive Date: 20170330
  Receipt Date: 20190326
  Transmission Date: 20190417
  Serious: Yes (Death, Hospitalization, Other)
  Sender: FDA-Public Use
  Company Number: MY-B.I. PHARMACEUTICALS,INC./RIDGEFIELD-2017-BI-017128

PATIENT
  Age: 66 Year
  Sex: Male

DRUGS (6)
  1. DOXYCYCLINE. [Concomitant]
     Active Substance: DOXYCYCLINE
     Indication: PRODUCT USED FOR UNKNOWN INDICATION
     Route: 065
     Dates: start: 201511
  2. GILOTRIF [Suspect]
     Active Substance: AFATINIB
     Route: 065
     Dates: start: 20160803, end: 201612
  3. OSIMERTINIB. [Concomitant]
     Active Substance: OSIMERTINIB
     Indication: PRODUCT USED FOR UNKNOWN INDICATION
     Route: 065
     Dates: start: 20161222, end: 20170712
  4. GILOTRIF [Suspect]
     Active Substance: AFATINIB
     Indication: EGFR GENE MUTATION
     Dosage: WAS WITHHELD FOR 1 WEEK
     Route: 065
     Dates: start: 201504
  5. GILOTRIF [Suspect]
     Active Substance: AFATINIB
     Indication: LUNG ADENOCARCINOMA
     Route: 065
     Dates: start: 2016, end: 20160802
  6. CARBOPLATIN W/GEMCITABINE [Concomitant]
     Active Substance: CARBOPLATIN\GEMCITABINE
     Indication: PRODUCT USED FOR UNKNOWN INDICATION
     Route: 065
     Dates: start: 20170804, end: 20171002

REACTIONS (26)
  - Pneumonia [Fatal]
  - Diarrhoea [Unknown]
  - Rash [Unknown]
  - Mucosal inflammation [Unknown]
  - Acute kidney injury [Unknown]
  - Paronychia [Unknown]
  - Paronychia [Not Recovered/Not Resolved]
  - Anaemia [Unknown]
  - Pneumonia aspiration [Unknown]
  - Dehydration [Unknown]
  - Rash [Unknown]
  - Chapped lips [Unknown]
  - Hyponatraemia [Unknown]
  - Odynophagia [Unknown]
  - Stomatitis [Recovering/Resolving]
  - Metastasis [Unknown]
  - Metastases to central nervous system [Unknown]
  - Epistaxis [Unknown]
  - Haemorrhage [Not Recovered/Not Resolved]
  - Haemoptysis [Unknown]
  - Rash generalised [Unknown]
  - Generalised tonic-clonic seizure [Unknown]
  - Mucosal inflammation [Recovered/Resolved]
  - Gingival bleeding [Unknown]
  - Rash [Unknown]
  - Pulmonary mass [Unknown]

NARRATIVE: CASE EVENT DATE: 201504
